FAERS Safety Report 6192698-5 (Version None)
Quarter: 2009Q2

REPORT INFORMATION
  Report Type: 
  Country: None (occurrence: None)
  Receive Date: 20090518
  Receipt Date: 20090508
  Transmission Date: 20091009
  Serious: Yes (Death, Hospitalization)
  Sender: FDA-Public Use
  Company Number: CN-ROCHE-631359

PATIENT
  Sex: Female
  Weight: 53.5 kg

DRUGS (7)
  1. CAPECITABINE [Suspect]
     Indication: DRUG USE FOR UNKNOWN INDICATION
     Dosage: FORM: PELLET. FREQ.: BID D1-14.LAST DOSE PRIOR TO SAE: 03 MAY 2009. TEMPORARILY INTERRUPTED
     Route: 048
     Dates: start: 20090227
  2. ERLOTINIB [Suspect]
     Indication: DRUG USE FOR UNKNOWN INDICATION
     Dosage: FORM: PELLET. FREQUENCY: QDLAST DOSE PRIOR TO SAE: 03 MAY 2009.TEMPORARILY INTERRUPTED DUE TO DYSPNE
     Route: 048
     Dates: start: 20090227
  3. CEFTIZOXIME [Concomitant]
     Dosage: REPORTED DRUG: CEFTIZOXIME 3.0 G IV GTT
     Dates: start: 20090217, end: 20090224
  4. CEFTIZOXIME [Concomitant]
     Dosage: REPORTED: CEFTIZOXIME 2.0 G IVGT
     Dates: start: 20090410, end: 20090413
  5. LEVOFLOXACIN [Concomitant]
     Dosage: REPORTED: LEVOFLOXACIN 400 MG IV GTT
     Dates: start: 20090217, end: 20090221
  6. THYMIC HUMORAL FACTOR GAMMA 2 [Concomitant]
     Dosage: REPORTED THYMIC PEPTIDE 1.6 G
     Dates: start: 20090410, end: 20090412
  7. THYMIC HUMORAL FACTOR GAMMA 2 [Concomitant]
     Dosage: REPORTED THYMIC PEPTIDE 1.6 G
     Dates: start: 20090429, end: 20090429

REACTIONS (1)
  - DYSPNOEA [None]
